FAERS Safety Report 21681566 (Version 1)
Quarter: 2022Q4

REPORT INFORMATION
  Report Type: Spontaneous
  Country: US (occurrence: None)
  Receive Date: 20221204
  Receipt Date: 20221204
  Transmission Date: 20230112
  Serious: Yes (Other)
  Sender: FDA-Public Use
  Company Number: None

PATIENT
  Age: 48 Year
  Sex: Female
  Weight: 60.75 kg

DRUGS (5)
  1. PAXLOVID [Suspect]
     Active Substance: NIRMATRELVIR\RITONAVIR
     Indication: COVID-19
     Dosage: FREQUENCY : TWICE A DAY;?
     Route: 048
     Dates: start: 20221202, end: 20221204
  2. St. Johns Wort 300mg [Concomitant]
     Dates: start: 20220701
  3. VITAMIN D [Concomitant]
     Active Substance: VITAMIN D NOS
     Dates: start: 20220901
  4. D-MANNOSE [Concomitant]
     Dates: start: 20220901
  5. PROBIOTICS NOS [Concomitant]
     Active Substance: PROBIOTICS NOS
     Dates: start: 20220901

REACTIONS (5)
  - Dysgeusia [None]
  - Paraesthesia oral [None]
  - Dry mouth [None]
  - Thirst [None]
  - Initial insomnia [None]

NARRATIVE: CASE EVENT DATE: 20221202
